FAERS Safety Report 12115984 (Version 1)
Quarter: 2016Q1

REPORT INFORMATION
  Report Type: Report from Study
  Country: US (occurrence: US)
  Receive Date: 20160225
  Receipt Date: 20160225
  Transmission Date: 20160526
  Serious: Yes (Other)
  Sender: FDA-Public Use
  Company Number: US-GILEAD-2016-0199926

PATIENT
  Age: 80 Year
  Sex: Male

DRUGS (1)
  1. AZTREONAM LYSINE [Suspect]
     Active Substance: AZTREONAM LYSINE
     Indication: CHRONIC OBSTRUCTIVE PULMONARY DISEASE
     Dosage: 75 MG, UNK
     Route: 055
     Dates: start: 20150807, end: 20160101

REACTIONS (5)
  - Drug ineffective [Unknown]
  - Asthma [Unknown]
  - Pseudomonas infection [Unknown]
  - Bronchitis chronic [Unknown]
  - Off label use [Recovered/Resolved]

NARRATIVE: CASE EVENT DATE: 20150807
